FAERS Safety Report 5127671-9 (Version None)
Quarter: 2006Q4

REPORT INFORMATION
  Report Type: 
  Country: None (occurrence: None)
  Receive Date: 20061016
  Receipt Date: 20060322
  Transmission Date: 20070319
  Serious: Yes (Death)
  Sender: FDA-Public Use
  Company Number: PHHO2006VE04836

PATIENT
  Sex: Female

DRUGS (5)
  1. DIOVAN [Suspect]
     Dosage: 80 MG, QD
     Route: 048
  2. LIPITOR [Concomitant]
  3. HYDROCHLOROTHIAZID [Concomitant]
     Indication: HYPERTENSION
  4. BI-EUGLUCON [Concomitant]
     Indication: DIABETES MELLITUS
  5. ASPIRIN [Concomitant]
     Indication: CARDIAC DISORDER

REACTIONS (1)
  - RENAL FAILURE [None]
